FAERS Safety Report 5831277-3 (Version None)
Quarter: 2008Q3

REPORT INFORMATION
  Report Type: 
  Country: None (occurrence: None)
  Receive Date: 20080801
  Receipt Date: 20080714
  Transmission Date: 20090109
  Serious: No
  Sender: FDA-Public Use
  Company Number: US-BOEHRINGER INGELHEIM GMBH, GERMANY-2008-BP-11020BP

PATIENT
  Sex: Female

DRUGS (6)
  1. COMBIVENT [Suspect]
     Indication: EMPHYSEMA
     Route: 055
     Dates: start: 20050701
  2. ADVAIR DISKUS 100/50 [Concomitant]
     Indication: EMPHYSEMA
  3. LIPITOR [Concomitant]
     Indication: BLOOD CHOLESTEROL INCREASED
  4. PLAVIX [Concomitant]
     Indication: ANGIOGRAM
  5. ASPIRIN [Concomitant]
     Indication: STENT PLACEMENT
  6. OXYGEN [Concomitant]
     Indication: EMPHYSEMA

REACTIONS (4)
  - DRUG INEFFECTIVE [None]
  - MUSCULOSKELETAL PAIN [None]
  - NASAL CONGESTION [None]
  - SUBCLAVIAN ARTERY STENOSIS [None]
